FAERS Safety Report 9704053 (Version 3)
Quarter: 2013Q4

REPORT INFORMATION
  Report Type: Spontaneous
  Country: US (occurrence: US)
  Receive Date: 20131122
  Receipt Date: 20131226
  Transmission Date: 20140711
  Serious: Yes (Hospitalization)
  Sender: FDA-Public Use
  Company Number: US-PFIZER INC-2013330255

PATIENT
  Age: 73 Year
  Sex: Male
  Weight: 88 kg

DRUGS (15)
  1. XELJANZ [Suspect]
     Indication: RHEUMATOID ARTHRITIS
     Dosage: 5MG (1 TABLET) TWICE DAILY
     Route: 048
     Dates: start: 201304, end: 201309
  2. AVODART [Concomitant]
     Dosage: 0.5 MG, 1X/DAY
  3. ADVAIR DISKUS [Concomitant]
     Dosage: 250/50MG (ONE PUFF) TWO TIMES A DAY
  4. FERROUS SULFATE [Concomitant]
     Dosage: 325 MG, 1X/DAY
  5. FISH OIL [Concomitant]
     Dosage: 1200 MG, 1X/DAY
  6. FOLIC ACID [Concomitant]
     Dosage: 1 MG, 1X/DAY
  7. HYDROCODONE W/ACETAMINOPHEN [Concomitant]
     Dosage: 5/325 MG (1DF), AS NEEDED (EVERY FOUR HOURS)
  8. LEFLUNOMIDE [Concomitant]
     Dosage: 20 MG
  9. LISINOPRIL [Concomitant]
     Dosage: 10 MG
  10. OMEPRAZOLE [Concomitant]
     Dosage: 20 MG, 2X/DAY
  11. PAROXETINE [Concomitant]
     Dosage: 20 MG, 1X/DAY
  12. PRAVASTATIN [Concomitant]
     Dosage: 40 MG, 1X/DAY
  13. PREDNISONE [Concomitant]
     Dosage: 5 MG, 1X/DAY
  14. TAMSULOSIN [Concomitant]
     Dosage: 0.4 MG
  15. TRAMADOL [Concomitant]
     Dosage: 50 MG, AS NEEDED (EVERY FOUR HOURS)

REACTIONS (2)
  - Full blood count decreased [Unknown]
  - Drug ineffective [Unknown]
